FAERS Safety Report 7541678-3 (Version None)
Quarter: 2011Q2

REPORT INFORMATION
  Report Type: 
  Country: None (occurrence: None)
  Receive Date: 20110613
  Receipt Date: 20110530
  Transmission Date: 20111010
  Serious: Yes (Life-Threatening, Hospitalization)
  Sender: FDA-Public Use
  Company Number: AU-RANBAXY-2011RR-45090

PATIENT
  Age: 40 Year
  Sex: Male

DRUGS (1)
  1. IBUPROFEN [Suspect]
     Indication: BACK PAIN
     Dosage: 1.4-2.0 G/DAY

REACTIONS (3)
  - RENAL TUBULAR ACIDOSIS [None]
  - OVERDOSE [None]
  - HYPOKALAEMIA [None]
